FAERS Safety Report 23252868 (Version 1)
Quarter: 2023Q4

REPORT INFORMATION
  Report Type: Other
  Country: US (occurrence: US)
  Receive Date: 20231201
  Receipt Date: 20231201
  Transmission Date: 20240109
  Serious: Yes (Hospitalization, Other)
  Sender: FDA-Public Use
  Company Number: US-Merck Healthcare KGaA-2023489591

PATIENT
  Age: 52 Year
  Sex: Female

DRUGS (1)
  1. METFORMIN HYDROCHLORIDE [Suspect]
     Active Substance: METFORMIN HYDROCHLORIDE
     Indication: Diabetes mellitus

REACTIONS (10)
  - Toxicity to various agents [Unknown]
  - Enteritis [Unknown]
  - Hypophagia [Unknown]
  - White blood cell count increased [Unknown]
  - Blood glucose decreased [Unknown]
  - Dry mouth [Unknown]
  - Acute kidney injury [Recovered/Resolved]
  - Lactic acidosis [Unknown]
  - Vomiting [Unknown]
  - Abdominal pain [Unknown]
